FAERS Safety Report 7328810-1 (Version None)
Quarter: 2011Q1

REPORT INFORMATION
  Report Type: 
  Country: None (occurrence: None)
  Receive Date: 20110225
  Receipt Date: 20110225
  Transmission Date: 20110831
  Serious: Yes (Other)
  Sender: FDA-Public Use
  Company Number: None

PATIENT
  Age: 8 Year
  Sex: Female
  Weight: 40.8237 kg

DRUGS (1)
  1. SINGULAIR [Suspect]
     Indication: MULTIPLE ALLERGIES
     Dosage: 5MG 1 DAILY PO
     Route: 048
     Dates: start: 20101007, end: 20110217

REACTIONS (3)
  - MOOD SWINGS [None]
  - FEAR [None]
  - APATHY [None]
